FAERS Safety Report 21992397 (Version 1)
Quarter: 2023Q1

REPORT INFORMATION
  Report Type: Report from Study
  Country: US (occurrence: US)
  Receive Date: 20230215
  Receipt Date: 20230215
  Transmission Date: 20230418
  Serious: Yes (Death, Other)
  Sender: FDA-Public Use
  Company Number: US-SUN PHARMACEUTICAL INDUSTRIES LTD-2023R1-378296

PATIENT
  Age: 38 Year
  Sex: Female

DRUGS (1)
  1. BUPROPION [Suspect]
     Active Substance: BUPROPION
     Indication: Product used for unknown indication
     Dosage: UNK
     Route: 065

REACTIONS (13)
  - Toxicity to various agents [Fatal]
  - Respiratory depression [Fatal]
  - Metabolic acidosis [Fatal]
  - Hypotension [Fatal]
  - Bradycardia [Fatal]
  - Bradypnoea [Fatal]
  - Ventricular arrhythmia [Fatal]
  - Electrocardiogram QT prolonged [Fatal]
  - Myocardial injury [Fatal]
  - Depressed level of consciousness [Fatal]
  - Seizure [Fatal]
  - Cardiac arrest [Fatal]
  - Brain death [Fatal]
